FAERS Safety Report 5057018-8 (Version None)
Quarter: 2006Q3

REPORT INFORMATION
  Report Type: 
  Country: None (occurrence: None)
  Receive Date: 20060721
  Receipt Date: 20051207
  Transmission Date: 20061208
  Serious: Yes (Other)
  Sender: FDA-Public Use
  Company Number: JP-AVENTIS-200513719JP

PATIENT
  Age: 50 Year
  Sex: Male

DRUGS (15)
  1. ARAVA [Suspect]
     Indication: RHEUMATOID ARTHRITIS
     Route: 048
     Dates: start: 20031009, end: 20031206
  2. ASPIRIN [Suspect]
     Indication: THROMBOSIS PROPHYLAXIS
     Route: 048
     Dates: end: 20031212
  3. ISCOTIN [Concomitant]
     Indication: DISSEMINATED TUBERCULOSIS
     Route: 048
     Dates: end: 20031212
  4. ACECOL [Concomitant]
     Indication: HYPERTENSION
     Route: 048
     Dates: end: 20031212
  5. SELECTOL [Concomitant]
     Indication: HYPERTENSION
     Route: 048
     Dates: end: 20031212
  6. PROMAC                                  /JPN/ [Concomitant]
     Indication: PROPHYLAXIS AGAINST GASTROINTESTINAL ULCER
     Route: 048
     Dates: end: 20031212
  7. ACINON [Concomitant]
     Indication: PROPHYLAXIS AGAINST GASTROINTESTINAL ULCER
     Route: 048
     Dates: end: 20031212
  8. BONALON [Concomitant]
     Indication: OSTEOPOROSIS
     Route: 048
     Dates: end: 20031212
  9. PURSENNID [Concomitant]
     Indication: CONSTIPATION
     Route: 048
     Dates: end: 20031212
  10. DORAL [Concomitant]
     Indication: INSOMNIA
     Route: 048
     Dates: end: 20031212
  11. BAKTAR [Concomitant]
     Indication: ANTIBIOTIC PROPHYLAXIS
     Dosage: DOSE: 1TABLET
     Route: 048
     Dates: end: 20031212
  12. MAGNESIUM OXIDE [Concomitant]
     Indication: CONSTIPATION
     Route: 048
     Dates: end: 20031212
  13. LEXOTAN [Concomitant]
     Indication: NEUROSIS
     Route: 048
     Dates: end: 20031212
  14. PREDNISOLONE [Concomitant]
     Indication: RHEUMATOID ARTHRITIS
     Route: 048
     Dates: end: 20031212
  15. PREDNISOLONE [Concomitant]
     Indication: BEHCET'S SYNDROME
     Route: 048
     Dates: end: 20031212

REACTIONS (5)
  - ALANINE AMINOTRANSFERASE INCREASED [None]
  - ASPARTATE AMINOTRANSFERASE INCREASED [None]
  - BLOOD ALKALINE PHOSPHATASE INCREASED [None]
  - GASTRIC ULCER [None]
  - IRON DEFICIENCY ANAEMIA [None]
